FAERS Safety Report 16834348 (Version 3)
Quarter: 2019Q4

REPORT INFORMATION
  Report Type: Spontaneous
  Country: US (occurrence: US)
  Receive Date: 20190920
  Receipt Date: 20191018
  Transmission Date: 20200122
  Serious: Yes (Life-Threatening, Hospitalization, Other)
  Sender: FDA-Public Use
  Company Number: US-JNJFOC-20190919616

PATIENT
  Age: 76 Year
  Sex: Male
  Weight: 180 kg

DRUGS (3)
  1. MEGESTROL ACETATE. [Interacting]
     Active Substance: MEGESTROL ACETATE
     Indication: FAILURE TO THRIVE
     Dosage: 200 MG, BID
     Route: 048
  2. RIVAROXABAN [Suspect]
     Active Substance: RIVAROXABAN
     Indication: CEREBROVASCULAR ACCIDENT PROPHYLAXIS
     Dosage: 20 MG
     Route: 048
  3. RIVAROXABAN [Interacting]
     Active Substance: RIVAROXABAN
     Dosage: 15 MG
     Route: 048
     Dates: start: 20180829

REACTIONS (13)
  - Drug interaction [Unknown]
  - Acute kidney injury [Recovered/Resolved]
  - Duodenal ulcer [Unknown]
  - Pneumonia [Unknown]
  - Acute respiratory failure [Unknown]
  - Metabolic acidosis [Unknown]
  - Anaemia [Unknown]
  - Oesophageal ulcer [Unknown]
  - Chronic gastritis [Unknown]
  - Incorrect dose administered [Unknown]
  - Unresponsive to stimuli [Unknown]
  - Upper gastrointestinal haemorrhage [Unknown]
  - Gastric ulcer [Unknown]

NARRATIVE: CASE EVENT DATE: 20180821
